FAERS Safety Report 16326558 (Version 1)
Quarter: 2019Q2

REPORT INFORMATION
  Report Type: Report from Study
  Country: US (occurrence: US)
  Receive Date: 20190517
  Receipt Date: 20190517
  Transmission Date: 20190711
  Serious: Yes (Death)
  Sender: FDA-Public Use
  Company Number: US-TESARO-2019-TSO01274-US

PATIENT
  Sex: Female
  Weight: 62.13 kg

DRUGS (1)
  1. ZEJULA [Suspect]
     Active Substance: NIRAPARIB
     Indication: OVARIAN CANCER
     Dosage: 300 MG, QD
     Route: 048

REACTIONS (4)
  - Pain [Unknown]
  - Feeling abnormal [Unknown]
  - Death [Fatal]
  - Fatigue [Unknown]
